FAERS Safety Report 5621169-7 (Version None)
Quarter: 2008Q1

REPORT INFORMATION
  Report Type: 
  Country: None (occurrence: None)
  Receive Date: 20080114
  Receipt Date: 20061207
  Transmission Date: 20080703
  Serious: Yes (Hospitalization)
  Sender: FDA-Public Use
  Company Number: A03200607295

PATIENT
  Age: 60 Year
  Sex: Male
  Weight: 94.78 kg

DRUGS (4)
  1. PLAVIX [Suspect]
     Indication: CORONARY ARTERY BYPASS
     Dosage: 75 MG QD - ORAL
     Route: 048
     Dates: start: 20000101
  2. IBUPROFEN [Concomitant]
  3. ACETYLSALICYLIC ACID SRT [Concomitant]
  4. VITAMIN E [Concomitant]

REACTIONS (3)
  - CONTUSION [None]
  - CORONARY ARTERIAL STENT INSERTION [None]
  - RASH GENERALISED [None]
